FAERS Safety Report 19293324 (Version 1)
Quarter: 2021Q2

REPORT INFORMATION
  Report Type: Spontaneous
  Country: IT (occurrence: IT)
  Receive Date: 20210524
  Receipt Date: 20210524
  Transmission Date: 20210717
  Serious: Yes (Other)
  Sender: FDA-Public Use
  Company Number: IT-PFIZER INC-2021529370

PATIENT
  Age: 50 Year
  Sex: Female

DRUGS (3)
  1. VINCRISTINE SULFATE. [Suspect]
     Active Substance: VINCRISTINE SULFATE
     Indication: NASOPHARYNGEAL CANCER
     Dosage: UNK UNK, CYCLIC
  2. DOXORUBICIN HCL [Suspect]
     Active Substance: DOXORUBICIN HYDROCHLORIDE
     Indication: NASOPHARYNGEAL CANCER
     Dosage: UNK UNK, CYCLIC
  3. CYCLOPHOSPHAMIDE. [Suspect]
     Active Substance: CYCLOPHOSPHAMIDE
     Indication: NASOPHARYNGEAL CANCER
     Dosage: UNK UNK, CYCLIC

REACTIONS (2)
  - Second primary malignancy [Recovering/Resolving]
  - Salivary gland cancer [Recovering/Resolving]

NARRATIVE: CASE EVENT DATE: 2019
